FAERS Safety Report 21109971 (Version 1)
Quarter: 2022Q3

REPORT INFORMATION
  Report Type: Spontaneous
  Country: US (occurrence: US)
  Receive Date: 20220721
  Receipt Date: 20220721
  Transmission Date: 20221026
  Serious: No
  Sender: FDA-Public Use
  Company Number: US-ENDO PHARMACEUTICALS INC-2022-003199

PATIENT
  Age: 50 Year
  Sex: Female

DRUGS (6)
  1. QWO [Suspect]
     Active Substance: COLLAGENASE CLOSTRIDIUM HISTOLYTICUM-AAES
     Indication: Cellulite
     Dosage: UNK UNKNOWN, UNKNOWN, (TREATMENT ONE, ON THIGHS)
     Route: 065
     Dates: start: 20211207
  2. QWO [Suspect]
     Active Substance: COLLAGENASE CLOSTRIDIUM HISTOLYTICUM-AAES
     Dosage: UNK UNKNOWN, UNKNOWN, (TREATMENT TWO, ON THIGHS)
     Route: 065
     Dates: start: 20220106
  3. QWO [Suspect]
     Active Substance: COLLAGENASE CLOSTRIDIUM HISTOLYTICUM-AAES
     Dosage: UNK UNKNOWN, UNKNOWN, (TREATMENT THREE, ON THIGHS)
     Route: 065
     Dates: start: 20220127
  4. QWO [Suspect]
     Active Substance: COLLAGENASE CLOSTRIDIUM HISTOLYTICUM-AAES
     Dosage: UNK UNKNOWN, UNKNOWN, (TREATMENT FOUR, ON THIGHS AND BUTTOCKS)
     Route: 065
     Dates: start: 20220224
  5. QWO [Suspect]
     Active Substance: COLLAGENASE CLOSTRIDIUM HISTOLYTICUM-AAES
     Dosage: UNK UNKNOWN, UNKNOWN, (TREATMENT FIVE, ON THIGHS AND BUTTOCKS)
     Route: 065
     Dates: start: 20220315
  6. QWO [Suspect]
     Active Substance: COLLAGENASE CLOSTRIDIUM HISTOLYTICUM-AAES
     Dosage: UNK UNKNOWN, UNKNOWN, (TREATMENT SIX, ON THIGHS AND BUTTOCKS)
     Route: 065
     Dates: start: 20220428

REACTIONS (10)
  - Skin indentation [Not Recovered/Not Resolved]
  - Cellulite [Unknown]
  - Condition aggravated [Unknown]
  - Haemosiderin stain [Not Recovered/Not Resolved]
  - Injection site nodule [Not Recovered/Not Resolved]
  - Skin hyperpigmentation [Unknown]
  - Contusion [Recovering/Resolving]
  - Inappropriate schedule of product administration [Recovered/Resolved]
  - Wrong technique in product usage process [Unknown]
  - Off label use [Unknown]

NARRATIVE: CASE EVENT DATE: 20211201
